FAERS Safety Report 20554818 (Version 1)
Quarter: 2022Q1

REPORT INFORMATION
  Report Type: Spontaneous
  Country: US (occurrence: None)
  Receive Date: 20220304
  Receipt Date: 20220304
  Transmission Date: 20220423
  Serious: Yes (Hospitalization, Other)
  Sender: FDA-Public Use
  Company Number: None

PATIENT
  Age: 35 Year
  Sex: Female
  Weight: 67.5 kg

DRUGS (2)
  1. SETLAKIN [Suspect]
     Active Substance: ETHINYL ESTRADIOL\LEVONORGESTREL
     Indication: Contraception
     Dosage: FREQUENCY : DAILY;?
     Route: 048
  2. SETLAKIN [Suspect]
     Active Substance: ETHINYL ESTRADIOL\LEVONORGESTREL
     Indication: Menstruation irregular

REACTIONS (1)
  - Hepatic adenoma [None]

NARRATIVE: CASE EVENT DATE: 20220218
